FAERS Safety Report 4689811-5 (Version None)
Quarter: 2005Q2

REPORT INFORMATION
  Report Type: 
  Country: None (occurrence: None)
  Receive Date: 20050613
  Receipt Date: 20050613
  Transmission Date: 20051028
  Serious: No
  Sender: FDA-Public Use
  Company Number: None

PATIENT
  Sex: Male
  Weight: 26 kg

DRUGS (1)
  1. NATURAL BALANCE TEARS        MAJOR PHARMACEUTICALS [Suspect]
     Indication: DRY EYE
     Dosage: 1 GTT    TID   OPHTHALMIC
     Route: 047
     Dates: start: 20050329, end: 20050330

REACTIONS (3)
  - DRUG HYPERSENSITIVITY [None]
  - INSTILLATION SITE REACTION [None]
  - PERIORBITAL OEDEMA [None]
